FAERS Safety Report 25360086 (Version 4)
Quarter: 2025Q3

REPORT INFORMATION
  Report Type: Spontaneous
  Country: JP (occurrence: JP)
  Receive Date: 20250527
  Receipt Date: 20250721
  Transmission Date: 20251020
  Serious: Yes (Other)
  Sender: NOVO NORDISK
  Company Number: JP-NOVOPROD-1435014

PATIENT
  Age: 85 Year
  Sex: Male
  Weight: 60 kg

DRUGS (1)
  1. CONCIZUMAB [Suspect]
     Active Substance: CONCIZUMAB
     Indication: Factor IX deficiency
     Dosage: 12 MG, QD
     Route: 058
     Dates: start: 202505

REACTIONS (1)
  - Muscle haemorrhage [Unknown]

NARRATIVE: CASE EVENT DATE: 20250514
